FAERS Safety Report 7997943 (Version 4)
Quarter: 2013Q3

REPORT INFORMATION
  Report Type: Spontaneous
  Country: FR (occurrence: FR)
  Receive Date: 20110620
  Receipt Date: 20130723
  Transmission Date: 20140515
  Serious: Yes (Hospitalization)
  Sender: FDA-Public Use
  Company Number: PHHY2011FR50334

PATIENT
  Age: 62 Year
  Sex: Male

DRUGS (7)
  1. NEORAL [Suspect]
     Indication: RENAL TRANSPLANT
     Dosage: 50 MG, BID
  2. COLCHIMAX [Interacting]
     Indication: GOUT
     Dosage: 1 MG, BID
     Dates: start: 20100826, end: 20100913
  3. ORGARAN [Concomitant]
     Dosage: 750 IU, UNK
  4. VANCOMYCIN [Concomitant]
  5. TAZOCILLINE [Concomitant]
  6. TRIFLUCAN [Concomitant]
  7. INEXIUM//ESOMEPRAZOLE SODIUM [Concomitant]

REACTIONS (13)
  - Ureteric anastomosis complication [Unknown]
  - Multi-organ failure [Unknown]
  - Kidney transplant rejection [Unknown]
  - Renal impairment [Unknown]
  - Respiratory arrest [Unknown]
  - Diarrhoea [Recovered/Resolved]
  - Leukopenia [Recovered/Resolved]
  - Rash [Recovered/Resolved]
  - Drug interaction [Unknown]
  - Skin reaction [Recovering/Resolving]
  - Hepatic function abnormal [Recovering/Resolving]
  - Full blood count abnormal [Unknown]
  - Immunosuppressant drug level increased [Unknown]
